FAERS Safety Report 4870269-8 (Version None)
Quarter: 2005Q4

REPORT INFORMATION
  Report Type: 
  Country: None (occurrence: None)
  Receive Date: 20051228
  Receipt Date: 20051213
  Transmission Date: 20060501
  Serious: Yes (Death, Other)
  Sender: FDA-Public Use
  Company Number: IT200512002407

PATIENT
  Age: 48 Year
  Sex: Male

DRUGS (3)
  1. ALIMTA [Suspect]
     Indication: PLEURAL MESOTHELIOMA MALIGNANT ADVANCED
     Dates: start: 20051118, end: 20051204
  2. FOLIC ACID [Concomitant]
  3. VITAMIN B12 [Concomitant]

REACTIONS (3)
  - CARDIAC ARREST [None]
  - CARDIOVASCULAR DISORDER [None]
  - INTESTINAL OBSTRUCTION [None]
